FAERS Safety Report 11423056 (Version 1)
Quarter: 2015Q3

REPORT INFORMATION
  Report Type: Spontaneous
  Country: US (occurrence: None)
  Receive Date: 20150826
  Receipt Date: 20150826
  Transmission Date: 20151125
  Serious: Yes (Other)
  Sender: FDA-Public Use
  Company Number: None

PATIENT
  Age: 58 Year
  Sex: Female
  Weight: 66.23 kg

DRUGS (12)
  1. LISINOPRIL AND HYDROCHLOROTHIAZIDE [Concomitant]
     Active Substance: HYDROCHLOROTHIAZIDE\LISINOPRIL
  2. TRAZODONE [Concomitant]
     Active Substance: TRAZODONE HYDROCHLORIDE
  3. DIG [Concomitant]
  4. MG [Concomitant]
     Active Substance: MAGNESIUM
  5. METHOCARBOMAL [Concomitant]
     Active Substance: METHOCARBAMOL
  6. ZOCOR [Concomitant]
     Active Substance: SIMVASTATIN
  7. METOPROLOL SA [Concomitant]
  8. METFORMIN/GLIPIZIDE [Concomitant]
  9. OMEPRAZOLE. [Concomitant]
     Active Substance: OMEPRAZOLE
  10. ASA [Concomitant]
     Active Substance: ASPIRIN
  11. HYDROCODONE/ACETAMINOPHEN [Suspect]
     Active Substance: ACETAMINOPHEN\HYDROCODONE
     Indication: MUSCULOSKELETAL PAIN
     Route: 048
  12. HYDRALAZINE/ISORDIL [Concomitant]

REACTIONS (1)
  - Nausea [None]

NARRATIVE: CASE EVENT DATE: 20150821
